FAERS Safety Report 9160193 (Version 2)
Quarter: 2013Q1

REPORT INFORMATION
  Report Type: Spontaneous
  Country: IE (occurrence: None)
  Receive Date: 20130219
  Receipt Date: 20130307
  Transmission Date: 20140127
  Serious: Yes (Other)
  Sender: FDA-Public Use
  Company Number: SYM-2013-00572

PATIENT
  Age: 7 Year
  Sex: Female

DRUGS (2)
  1. FLAGYL-S (METRONIDAZOLE BENZOATE) (200 MILLIGRAM, SUSPENSION) (METRONIDAZOLE BENZOATE) [Suspect]
     Indication: PRODUCT USED FOR UNKNOWN INDICATION
     Route: 048
     Dates: start: 20130108, end: 20130115
  2. TRILEPTAL (OXCARBAZEPINE) (UNKNOWN) (OXCARBAZEPINE) [Concomitant]

REACTIONS (1)
  - Convulsion [None]
